FAERS Safety Report 14993176 (Version 1)
Quarter: 2018Q2

REPORT INFORMATION
  Report Type: Spontaneous
  Country: CN (occurrence: CN)
  Receive Date: 20180610
  Receipt Date: 20180610
  Transmission Date: 20180711
  Serious: Yes (Disabling)
  Sender: FDA-Public Use
  Company Number: PHHY2018CN017666

PATIENT
  Age: 63 Year
  Sex: Female
  Weight: 65 kg

DRUGS (1)
  1. ACLASTA [Suspect]
     Active Substance: ZOLEDRONIC ACID
     Indication: OSTEOPOROSIS
     Dosage: 5 MG/100 ML, ONCE/SINGLE
     Route: 042
     Dates: start: 20180130

REACTIONS (4)
  - Lacrimation increased [Unknown]
  - Vision blurred [Unknown]
  - Blindness [Recovered/Resolved with Sequelae]
  - Eye pain [Unknown]

NARRATIVE: CASE EVENT DATE: 20180131
